FAERS Safety Report 7259693-6 (Version None)
Quarter: 2011Q1

REPORT INFORMATION
  Report Type: 
  Country: None (occurrence: None)
  Receive Date: 20110130
  Receipt Date: 20101001
  Transmission Date: 20110831
  Serious: No
  Sender: FDA-Public Use
  Company Number: US-ABBOTT-10P-163-0656309-00

PATIENT
  Sex: Male
  Weight: 78.088 kg

DRUGS (3)
  1. HUMIRA [Suspect]
     Indication: PSORIASIS
     Dates: start: 20100201
  2. HUMIRA [Suspect]
     Indication: PSORIATIC ARTHROPATHY
     Route: 058
     Dates: start: 20080101, end: 20090101
  3. HUMIRA [Suspect]
     Indication: RHEUMATOID ARTHRITIS

REACTIONS (4)
  - PSORIATIC ARTHROPATHY [None]
  - PSORIASIS [None]
  - JOINT SWELLING [None]
  - DRUG INEFFECTIVE [None]
